FAERS Safety Report 26174679 (Version 1)
Quarter: 2025Q4

REPORT INFORMATION
  Report Type: Spontaneous
  Country: US (occurrence: US)
  Receive Date: 20251218
  Receipt Date: 20251218
  Transmission Date: 20260119
  Serious: No
  Sender: BRACCO
  Company Number: US-BRACCO-2025US07461

PATIENT
  Age: 41 Year
  Sex: Male

DRUGS (4)
  1. CARDIOGEN-82 [Suspect]
     Active Substance: RUBIDIUM CHLORIDE RB-82
     Indication: Positron emission tomogram
     Dosage: UNK UNK, SINGLE
     Dates: start: 20251024, end: 20251024
  2. CARDIOGEN-82 [Suspect]
     Active Substance: RUBIDIUM CHLORIDE RB-82
  3. LEXISCAN [Suspect]
     Active Substance: REGADENOSON
     Indication: Positron emission tomogram
     Dosage: UNK
  4. ATORVASTATIN [Concomitant]
     Active Substance: ATORVASTATIN

REACTIONS (1)
  - Swelling [Recovering/Resolving]

NARRATIVE: CASE EVENT DATE: 20251024
